FAERS Safety Report 7536479-6 (Version None)
Quarter: 2011Q2

REPORT INFORMATION
  Report Type: 
  Country: None (occurrence: None)
  Receive Date: 20110609
  Receipt Date: 20110601
  Transmission Date: 20111010
  Serious: Yes (Other)
  Sender: FDA-Public Use
  Company Number: US-PFIZER INC-2011117497

PATIENT
  Age: 75 Year
  Sex: Male

DRUGS (3)
  1. RIFAMPICIN [Concomitant]
     Indication: BRUCELLOSIS
  2. GENTAMYCIN SULFATE [Concomitant]
     Indication: BRUCELLOSIS
  3. DOXYCYCLINE HYCLATE [Suspect]
     Indication: BRUCELLOSIS

REACTIONS (2)
  - SEPTIC SHOCK [None]
  - DRUG INEFFECTIVE [None]
